FAERS Safety Report 6189614-9 (Version None)
Quarter: 2009Q2

REPORT INFORMATION
  Report Type: 
  Country: None (occurrence: None)
  Receive Date: 20090512
  Receipt Date: 20090512
  Transmission Date: 20091009
  Serious: Yes (Life-Threatening, Disabling, Other)
  Sender: FDA-Public Use
  Company Number: None

PATIENT
  Age: 51 Year
  Sex: Female
  Weight: 74.8435 kg

DRUGS (2)
  1. AMBIEN [Suspect]
     Indication: INSOMNIA
     Dosage: 10 MG NIGHT PO
     Route: 048
     Dates: start: 20070101, end: 20071113
  2. AMBIEN [Suspect]
     Indication: INSOMNIA
     Dosage: 6.5 MG 12.00 1 PER NIGHT PO
     Route: 048
     Dates: start: 20071114, end: 20090315

REACTIONS (5)
  - CRYING [None]
  - DEMENTIA [None]
  - FEELING ABNORMAL [None]
  - MEMORY IMPAIRMENT [None]
  - SOMNOLENCE [None]
